FAERS Safety Report 12503784 (Version 2)
Quarter: 2016Q3

REPORT INFORMATION
  Report Type: Report from Study
  Country: GB (occurrence: GB)
  Receive Date: 20160628
  Receipt Date: 20160701
  Transmission Date: 20161109
  Serious: Yes (Hospitalization)
  Sender: FDA-Public Use
  Company Number: GB-TEVA-670036ACC

PATIENT
  Age: 46 Year
  Sex: Male
  Weight: 70.6 kg

DRUGS (11)
  1. LANSOPRAZOLE. [Concomitant]
     Active Substance: LANSOPRAZOLE
     Route: 065
     Dates: start: 201601
  2. CISPLATIN. [Suspect]
     Active Substance: CISPLATIN
     Indication: OESOPHAGEAL ADENOCARCINOMA
     Dosage: ON DAY ONE OF 21 DAY CYCLE
     Route: 042
     Dates: start: 20130415
  3. CISPLATIN. [Suspect]
     Active Substance: CISPLATIN
     Dates: start: 20160603
  4. LISINOPRIL. [Concomitant]
     Active Substance: LISINOPRIL
     Route: 065
     Dates: start: 2010
  5. NUTRITIONAL SUPPLEMENT [Concomitant]
     Active Substance: DIETARY SUPPLEMENT
     Route: 065
     Dates: start: 20160421
  6. XELODA [Suspect]
     Active Substance: CAPECITABINE
     Indication: OESOPHAGEAL ADENOCARCINOMA
     Route: 048
     Dates: start: 20130415
  7. MEGACE [Concomitant]
     Active Substance: MEGESTROL ACETATE
     Route: 065
     Dates: start: 20160415
  8. METOCLOPRAMIDE. [Concomitant]
     Active Substance: METOCLOPRAMIDE
     Route: 065
     Dates: start: 20160414
  9. CYCLIZINE [Concomitant]
     Active Substance: CYCLIZINE
  10. ONDANSETRON [Concomitant]
     Active Substance: ONDANSETRON
     Route: 065
     Dates: start: 20160415, end: 20160523
  11. COCODAMOL [Concomitant]
     Active Substance: ACETAMINOPHEN\CODEINE PHOSPHATE
     Route: 065
     Dates: start: 201601

REACTIONS (2)
  - Constipation [Not Recovered/Not Resolved]
  - Dehydration [Recovered/Resolved]

NARRATIVE: CASE EVENT DATE: 20160522
